FAERS Safety Report 7561649-0 (Version None)
Quarter: 2011Q2

REPORT INFORMATION
  Report Type: 
  Country: None (occurrence: None)
  Receive Date: 20110621
  Receipt Date: 20110614
  Transmission Date: 20111010
  Serious: Yes (Hospitalization, Other)
  Sender: FDA-Public Use
  Company Number: ES-PFIZER INC-2011130978

PATIENT
  Age: 72 Year
  Sex: Male

DRUGS (6)
  1. BISOPROLOL [Interacting]
     Indication: HYPERTENSION
     Dosage: UNK, 1X/DAY
     Route: 048
  2. FUROSEMIDE [Interacting]
     Indication: RENAL FAILURE CHRONIC
     Dosage: UNK, 1X/DAY
     Route: 048
     Dates: end: 20100409
  3. CARDURA [Suspect]
     Indication: HYPERTENSION
     Dosage: UNK, 1X/DAY
     Route: 048
  4. TROMALYT [Concomitant]
     Indication: PROPHYLAXIS
     Dosage: UNK, 1X/DAY
     Route: 048
     Dates: start: 20080601
  5. SANDIMMUNE [Interacting]
     Indication: RENAL TRANSPLANT
     Dosage: UNK, 1X/DAY
     Route: 048
  6. LOSARTAN POTASSIUM [Interacting]
     Indication: HYPERTENSION
     Dosage: UNK, 1X/DAY
     Route: 048
     Dates: start: 20090901, end: 20100409

REACTIONS (2)
  - DRUG INTERACTION [None]
  - RENAL FAILURE ACUTE [None]
